FAERS Safety Report 5276866-2 (Version None)
Quarter: 2007Q1

REPORT INFORMATION
  Report Type: 
  Country: None (occurrence: None)
  Receive Date: 20070327
  Receipt Date: 20070326
  Transmission Date: 20070707
  Serious: Yes (Death, Hospitalization, Other)
  Sender: FDA-Public Use
  Company Number: HQWYE106714MAR05

PATIENT
  Sex: Female
  Weight: 62 kg

DRUGS (3)
  1. RAPAMUNE [Suspect]
     Indication: PROPHYLAXIS AGAINST TRANSPLANT REJECTION
     Route: 048
     Dates: start: 20050216, end: 20050301
  2. RAPAMUNE [Suspect]
     Route: 048
     Dates: start: 20050302, end: 20050310
  3. PREDNISONE [Concomitant]
     Route: 048
     Dates: start: 20040802, end: 20050310

REACTIONS (3)
  - KIDNEY TRANSPLANT REJECTION [None]
  - PERIRENAL HAEMATOMA [None]
  - PULMONARY EMBOLISM [None]
